FAERS Safety Report 7350767-8 (Version None)
Quarter: 2011Q1

REPORT INFORMATION
  Report Type: 
  Country: None (occurrence: None)
  Receive Date: 20110314
  Receipt Date: 20110304
  Transmission Date: 20110831
  Serious: Yes (Other)
  Sender: FDA-Public Use
  Company Number: US-JNJFOC-20110304154

PATIENT
  Sex: Female
  Weight: 81.65 kg

DRUGS (2)
  1. ZOLOFT [Concomitant]
     Route: 048
  2. LEVAQUIN [Suspect]
     Indication: SINUSITIS
     Route: 048

REACTIONS (4)
  - FIBROMYALGIA [None]
  - HERPES ZOSTER [None]
  - MUSCULOSKELETAL PAIN [None]
  - SWELLING [None]
